FAERS Safety Report 7505626-4 (Version None)
Quarter: 2011Q2

REPORT INFORMATION
  Report Type: 
  Country: None (occurrence: None)
  Receive Date: 20110526
  Receipt Date: 20110523
  Transmission Date: 20111010
  Serious: Yes (Other)
  Sender: FDA-Public Use
  Company Number: US-PFIZER INC-2011072795

PATIENT
  Sex: Male
  Weight: 83.9 kg

DRUGS (4)
  1. CHANTIX [Suspect]
     Indication: SMOKING CESSATION THERAPY
     Dosage: 0.5 MG, 1X/DAY
     Route: 048
     Dates: start: 20110225, end: 20110101
  2. CIPROFLOXACIN [Concomitant]
     Dosage: 500 MG, 2X/DAY
     Route: 048
  3. FLAGYL [Concomitant]
     Dosage: 500 MG, 2X/DAY
     Route: 048
  4. CHANTIX [Suspect]
     Dosage: 1 MG, 2X/DAY
     Route: 048
     Dates: start: 20110101, end: 20110101

REACTIONS (7)
  - ORAL PAIN [None]
  - BONE PAIN [None]
  - PHARYNGEAL OEDEMA [None]
  - RASH [None]
  - DYSPHAGIA [None]
  - CHAPPED LIPS [None]
  - SKIN EXFOLIATION [None]
